FAERS Safety Report 5030688-6 (Version None)
Quarter: 2006Q2

REPORT INFORMATION
  Report Type: 
  Country: None (occurrence: None)
  Receive Date: 20060615
  Receipt Date: 20060606
  Transmission Date: 20061013
  Serious: Yes (Death, Other)
  Sender: FDA-Public Use
  Company Number: 2006065270

PATIENT
  Age: 81 Year
  Sex: Male

DRUGS (7)
  1. SOLU-MEDROL [Suspect]
     Indication: ASTHMA
     Dosage: 500 MG, INTRAVENOUS
     Route: 042
     Dates: start: 20060514, end: 20060515
  2. ROCEPHIN [Suspect]
     Indication: BRONCHITIS
     Dosage: 2 IN 1 D, INTRAVENOUS
     Route: 042
     Dates: start: 20060514, end: 20060515
  3. AMINOPHYLLIN [Concomitant]
     Indication: ASTHMA
     Dosage: 250 MG (1 IN 1 D), INTRAVENOUS
     Route: 042
     Dates: start: 20060514, end: 20060515
  4. HUMULIN R [Concomitant]
  5. THEOLONG (THEOPHYLLINE) [Concomitant]
  6. PREDNISOLONE [Concomitant]
  7. FLUTIDE DISKUS (FLUTICASONE PROPIONATE) [Concomitant]

REACTIONS (8)
  - BLOOD CREATINE PHOSPHOKINASE INCREASED [None]
  - BLOOD UREA INCREASED [None]
  - BRADYCARDIA [None]
  - CARDIAC ARREST [None]
  - COMA HEPATIC [None]
  - HEPATITIS FULMINANT [None]
  - PCO2 DECREASED [None]
  - PO2 DECREASED [None]
